FAERS Safety Report 14251286 (Version 1)
Quarter: 2017Q4

REPORT INFORMATION
  Report Type: Spontaneous
  Country: US (occurrence: US)
  Receive Date: 20171205
  Receipt Date: 20171205
  Transmission Date: 20180321
  Serious: Yes (Hospitalization)
  Sender: FDA-Public Use
  Company Number: US-TEVA-819436USA

PATIENT
  Age: 25 Year
  Sex: Male

DRUGS (2)
  1. CLOZAPINE. [Suspect]
     Active Substance: CLOZAPINE
     Indication: SCHIZOPHRENIA
     Route: 065
  2. CLOZAPINE. [Suspect]
     Active Substance: CLOZAPINE
     Route: 065

REACTIONS (9)
  - Metabolic encephalopathy [Unknown]
  - Renal failure [Unknown]
  - Altered state of consciousness [Unknown]
  - Abscess [Unknown]
  - Urinary tract infection [Unknown]
  - Tachycardia [Unknown]
  - Sepsis [Unknown]
  - Decreased appetite [Unknown]
  - Body temperature increased [Unknown]

NARRATIVE: CASE EVENT DATE: 20171021
